FAERS Safety Report 23858826 (Version 2)
Quarter: 2024Q2

REPORT INFORMATION
  Report Type: Report from Study
  Country: US (occurrence: US)
  Receive Date: 20240515
  Receipt Date: 20240528
  Transmission Date: 20240716
  Serious: Yes (Other)
  Sender: FDA-Public Use
  Company Number: US-OTSUKA-2024_013138

PATIENT
  Age: 38 Year
  Sex: Female
  Weight: 72.5 kg

DRUGS (1)
  1. ARIPIPRAZOLE [Suspect]
     Active Substance: ARIPIPRAZOLE
     Indication: Delusion
     Dosage: 15 MG
     Route: 065
     Dates: start: 20201008, end: 20210526

REACTIONS (6)
  - Premature labour [Recovered/Resolved]
  - Breech presentation [Recovered/Resolved]
  - Caesarean section [Recovered/Resolved]
  - Beta haemolytic streptococcal infection [Unknown]
  - Gestational diabetes [Recovered/Resolved]
  - Product use in unapproved indication [Unknown]

NARRATIVE: CASE EVENT DATE: 20201008
